FAERS Safety Report 9921201 (Version 1)
Quarter: 2014Q1

REPORT INFORMATION
  Report Type: Spontaneous
  Country: US (occurrence: None)
  Receive Date: 20140221
  Receipt Date: 20140221
  Transmission Date: 20141002
  Serious: No
  Sender: FDA-Public Use
  Company Number: None

PATIENT
  Age: 69 Year
  Sex: Female
  Weight: 91.9 kg

DRUGS (2)
  1. ALOXI [Suspect]
     Indication: CHEMOTHERAPY
     Dosage: 0.25 MG ONCE IV (ALOXI)?1/6 LOTE #33001589?1/5 LOT #33001586
  2. ALOXI [Suspect]
     Indication: NAUSEA
     Dosage: 0.25 MG ONCE IV (ALOXI)?1/6 LOTE #33001589?1/5 LOT #33001586

REACTIONS (4)
  - Back pain [None]
  - Flushing [None]
  - Dyspnoea [None]
  - Feeling abnormal [None]
